FAERS Safety Report 25608354 (Version 1)
Quarter: 2025Q3

REPORT INFORMATION
  Report Type: Spontaneous
  Country: CN (occurrence: CN)
  Receive Date: 20250726
  Receipt Date: 20250726
  Transmission Date: 20251020
  Serious: Yes (Life-Threatening, Hospitalization)
  Sender: ACCORD
  Company Number: CN-MLMSERVICE-20250704-PI562595-00082-1

PATIENT
  Age: 75 Year
  Sex: Male
  Weight: 72 kg

DRUGS (7)
  1. ATORVASTATIN [Suspect]
     Active Substance: ATORVASTATIN
     Indication: Product used for unknown indication
     Dates: start: 2021, end: 2023
  2. CARBOPLATIN [Suspect]
     Active Substance: CARBOPLATIN
     Indication: Small cell lung cancer metastatic
     Route: 042
     Dates: start: 20230629, end: 202310
  3. ETOPOSIDE [Suspect]
     Active Substance: ETOPOSIDE
     Indication: Small cell lung cancer metastatic
     Dosage: ON DAYS 1 TO 3, WITH A 21-DAY CYCLE
     Route: 042
     Dates: start: 20230629, end: 202310
  4. ADEBRELIMAB [Suspect]
     Active Substance: ADEBRELIMAB
     Indication: Small cell lung cancer metastatic
     Dosage: ON DAY 1
     Route: 042
     Dates: start: 20230629, end: 202310
  5. ASPIRIN [Concomitant]
     Active Substance: ASPIRIN
     Dates: start: 2021
  6. SACUBITRIL\VALSARTAN [Concomitant]
     Active Substance: SACUBITRIL\VALSARTAN
     Dates: start: 2021
  7. METOPROLOL [Concomitant]
     Active Substance: METOPROLOL
     Dates: start: 2021

REACTIONS (4)
  - Cholestatic liver injury [Recovering/Resolving]
  - Drug-induced liver injury [Recovering/Resolving]
  - Renal failure [Recovering/Resolving]
  - Delirium [Unknown]

NARRATIVE: CASE EVENT DATE: 20231001
